FAERS Safety Report 13480995 (Version 3)
Quarter: 2017Q2

REPORT INFORMATION
  Report Type: Spontaneous
  Country: US (occurrence: US)
  Receive Date: 20170425
  Receipt Date: 20170502
  Transmission Date: 20170830
  Serious: Yes (Hospitalization)
  Sender: FDA-Public Use
  Company Number: US-BAUSCH-BL-2016-028153

PATIENT
  Age: 58 Year
  Sex: Female

DRUGS (5)
  1. XENAZINE [Suspect]
     Active Substance: TETRABENAZINE
     Dosage: TOOK TWO 25 MG TABLETS IN THE MORNING, ONE 25 MG AT NOON, AND TWO 25 MG TABLETS IN THE EVENING
     Route: 048
     Dates: start: 20170306
  2. XENAZINE [Suspect]
     Active Substance: TETRABENAZINE
     Dosage: TWO TABLETS IN THE MORNING, ONE TABLET AT NOON AND TWO TABLETS IN THE EVENING.
     Route: 048
     Dates: start: 20170111
  3. XENAZINE [Suspect]
     Active Substance: TETRABENAZINE
     Indication: CHOREA
     Dosage: 1 TABLET ORALLY IN MORNING, HALF TABLET ORALLY IN THE AFTERNOON, 1 TABLET ORALLY IN THE EVENING
     Route: 048
     Dates: start: 201609
  4. XENAZINE [Suspect]
     Active Substance: TETRABENAZINE
     Indication: TARDIVE DYSKINESIA
     Dosage: 2 TABLETS ORALLY IN THE MORNING, 1 TABLET IN THE AFTERNOON, AND 1 TABLET AT BEDTIME
     Route: 048
     Dates: start: 201609
  5. REGLAN [Concomitant]
     Active Substance: METOCLOPRAMIDE HYDROCHLORIDE
     Indication: PRODUCT USED FOR UNKNOWN INDICATION

REACTIONS (14)
  - Tongue movement disturbance [Recovered/Resolved]
  - Dyskinesia [Unknown]
  - Drug dose omission [Unknown]
  - Anxiety [Recovering/Resolving]
  - Treatment noncompliance [Unknown]
  - Condition aggravated [Unknown]
  - Leukocytosis [Recovering/Resolving]
  - Hyperhidrosis [Recovering/Resolving]
  - Hypoaesthesia oral [Recovering/Resolving]
  - Choking sensation [Recovering/Resolving]
  - Hospitalisation [Unknown]
  - Dyspnoea [Recovering/Resolving]
  - Pneumonia [Recovering/Resolving]
  - Overdose [Unknown]

NARRATIVE: CASE EVENT DATE: 2016
